FAERS Safety Report 23302514 (Version 2)
Quarter: 2024Q1

REPORT INFORMATION
  Report Type: Spontaneous
  Country: US (occurrence: US)
  Receive Date: 20231215
  Receipt Date: 20240314
  Transmission Date: 20240410
  Serious: Yes (Hospitalization)
  Sender: FDA-Public Use
  Company Number: US-PFIZER INC-202300441400

PATIENT
  Age: 76 Year
  Sex: Female
  Weight: 74.83 kg

DRUGS (1)
  1. PAXLOVID [Suspect]
     Active Substance: NIRMATRELVIR\RITONAVIR
     Indication: COVID-19 treatment
     Dosage: UNK UNK, 3X/DAY (3 TIMES DAILY STANDARD DOSE)
     Dates: start: 20231128

REACTIONS (11)
  - COVID-19 [Not Recovered/Not Resolved]
  - Disease recurrence [Not Recovered/Not Resolved]
  - Troponin increased [Unknown]
  - Dyspnoea [Not Recovered/Not Resolved]
  - Influenza [Unknown]
  - Bronchitis [Unknown]
  - Cognitive disorder [Unknown]
  - Balance disorder [Unknown]
  - Chills [Unknown]
  - Pruritus [Unknown]
  - Off label use [Unknown]

NARRATIVE: CASE EVENT DATE: 20231128
